FAERS Safety Report 16455999 (Version 1)
Quarter: 2019Q2

REPORT INFORMATION
  Report Type: Report from Study
  Country: DE (occurrence: DE)
  Receive Date: 20190620
  Receipt Date: 20190620
  Transmission Date: 20190711
  Serious: Yes (Other)
  Sender: FDA-Public Use
  Company Number: DE-ROCHE-2335475

PATIENT

DRUGS (9)
  1. 5-FU [FLUOROURACIL] [Suspect]
     Active Substance: FLUOROURACIL
     Indication: BILE DUCT CANCER
     Route: 065
  2. NIVOLUMAB [Suspect]
     Active Substance: NIVOLUMAB
     Indication: BILE DUCT CANCER
     Route: 065
  3. OXALIPLATIN. [Suspect]
     Active Substance: OXALIPLATIN
     Indication: BILE DUCT CANCER
     Route: 065
  4. CAPECITABINE. [Suspect]
     Active Substance: CAPECITABINE
     Indication: BILE DUCT CANCER
     Route: 065
  5. IRINOTECAN [Suspect]
     Active Substance: IRINOTECAN
     Indication: BILE DUCT CANCER
     Route: 065
  6. CISPLATIN. [Suspect]
     Active Substance: CISPLATIN
     Indication: BILE DUCT CANCER
     Route: 065
  7. GEMCITABINE [Suspect]
     Active Substance: GEMCITABINE\GEMCITABINE HYDROCHLORIDE
     Indication: BILE DUCT CANCER
     Route: 065
  8. SORAFENIB [Suspect]
     Active Substance: SORAFENIB
     Indication: BILE DUCT CANCER
     Route: 065
  9. FOLINIC ACID [Suspect]
     Active Substance: LEUCOVORIN
     Indication: BILE DUCT CANCER
     Route: 065

REACTIONS (8)
  - Blood bilirubin abnormal [Unknown]
  - Blood alkaline phosphatase increased [Unknown]
  - Transaminases abnormal [Unknown]
  - Haemolytic uraemic syndrome [Unknown]
  - Anaemia [Unknown]
  - Renal impairment [Unknown]
  - Blood alkaline phosphatase abnormal [Unknown]
  - Blood bilirubin increased [Unknown]
